FAERS Safety Report 4692461-8 (Version None)
Quarter: 2005Q2

REPORT INFORMATION
  Report Type: 
  Country: None (occurrence: None)
  Receive Date: 20050613
  Receipt Date: 20050413
  Transmission Date: 20051028
  Serious: Yes (Hospitalization, Other)
  Sender: FDA-Public Use
  Company Number: 2005-00799

PATIENT
  Age: 60 Year
  Sex: Male
  Weight: 77.1 kg

DRUGS (3)
  1. VELCADE [Suspect]
     Indication: MANTLE CELL LYMPHOMA
     Dosage: IV BOLUS
     Route: 040
     Dates: start: 20050101
  2. ANTIDIARRHEAL MEDICATION() [Suspect]
     Dates: start: 20050401
  3. ANTIHYPERTENSIVES [Concomitant]

REACTIONS (4)
  - DEHYDRATION [None]
  - DIARRHOEA [None]
  - NEUROPATHY PERIPHERAL [None]
  - PANCREATITIS [None]
